FAERS Safety Report 8273845-8 (Version None)
Quarter: 2012Q2

REPORT INFORMATION
  Report Type: 
  Country: None (occurrence: None)
  Receive Date: 20120406
  Receipt Date: 20120406
  Transmission Date: 20120825
  Serious: Yes (Disabling, Other)
  Sender: FDA-Public Use
  Company Number: None

PATIENT
  Age: 34 Year
  Sex: Male
  Weight: 72.7 kg

DRUGS (1)
  1. LARIAM [Suspect]
     Indication: MALARIA PROPHYLAXIS
     Dosage: 250 MG MEFLOQUINE 1 PER WEEK PILL
     Dates: start: 20061001, end: 20080701

REACTIONS (7)
  - PARANOIA [None]
  - ANXIETY [None]
  - PANIC ATTACK [None]
  - TINNITUS [None]
  - NERVOUS SYSTEM DISORDER [None]
  - ABNORMAL DREAMS [None]
  - HYPOAESTHESIA [None]
